FAERS Safety Report 16655608 (Version 1)
Quarter: 2019Q3

REPORT INFORMATION
  Report Type: Spontaneous
  Country: SE (occurrence: SE)
  Receive Date: 20190801
  Receipt Date: 20190801
  Transmission Date: 20191004
  Serious: Yes (Hospitalization)
  Sender: FDA-Public Use
  Company Number: SE-TEVA-2019-SE-1085998

PATIENT
  Age: 23 Year
  Sex: Male

DRUGS (3)
  1. LOPERAMIDE [Suspect]
     Active Substance: LOPERAMIDE
     Indication: DIARRHOEA
     Dosage: A MAP, POSSIBLY 20-100 TABLETS
     Route: 048
     Dates: start: 20190627, end: 20190627
  2. GABAPENTIN. [Concomitant]
     Active Substance: GABAPENTIN
  3. OXASCAND [Concomitant]
     Active Substance: OXAZEPAM

REACTIONS (6)
  - Electrocardiogram QT prolonged [Unknown]
  - Miosis [Unknown]
  - Intentional overdose [Unknown]
  - Oxygen saturation decreased [Unknown]
  - Pyrexia [Unknown]
  - Depressed level of consciousness [Unknown]

NARRATIVE: CASE EVENT DATE: 20190628
